FAERS Safety Report 5373850-5 (Version None)
Quarter: 2007Q2

REPORT INFORMATION
  Report Type: 
  Country: None (occurrence: None)
  Receive Date: 20070628
  Receipt Date: 20070620
  Transmission Date: 20071010
  Serious: Yes (Other)
  Sender: FDA-Public Use
  Company Number: GB-SANOFI-SYNTHELABO-A01200705488

PATIENT
  Age: 20 Year
  Sex: Female

DRUGS (4)
  1. OMEPRAZOLE [Concomitant]
     Dosage: UNK
  2. COLOFAC [Concomitant]
     Indication: GASTROOESOPHAGEAL REFLUX DISEASE
     Dosage: UNK
  3. LEVOTHYROXINE SODIUM [Concomitant]
     Indication: HYPOTHYROIDISM
     Dosage: 125 MCG
     Dates: start: 19960101
  4. PLAQUENIL [Suspect]
     Indication: SJOGREN'S SYNDROME
     Route: 048
     Dates: start: 20060901

REACTIONS (4)
  - MUSCULAR WEAKNESS [None]
  - MYOPATHY [None]
  - TACHYCARDIA [None]
  - TREMOR [None]
